FAERS Safety Report 24880164 (Version 1)
Quarter: 2025Q1

REPORT INFORMATION
  Report Type: Report from Study
  Country: JP (occurrence: JP)
  Receive Date: 20250123
  Receipt Date: 20250123
  Transmission Date: 20250409
  Serious: Yes (Life-Threatening)
  Sender: EISAI
  Company Number: JP-Eisai-202302000_LEN-EC_P_1

PATIENT
  Age: 72 Year
  Sex: Female
  Weight: 37 kg

DRUGS (3)
  1. LENVIMA [Suspect]
     Active Substance: LENVATINIB
     Indication: Endometrial cancer recurrent
     Route: 048
     Dates: start: 20230512, end: 20230522
  2. LENVIMA [Suspect]
     Active Substance: LENVATINIB
     Route: 048
     Dates: start: 20230530, end: 20230530
  3. KEYTRUDA [Suspect]
     Active Substance: PEMBROLIZUMAB
     Indication: Endometrial cancer recurrent
     Route: 041
     Dates: start: 20230512, end: 20230530

REACTIONS (1)
  - Cytokine release syndrome [Recovering/Resolving]

NARRATIVE: CASE EVENT DATE: 20230530
